FAERS Safety Report 9545101 (Version 2)
Quarter: 2013Q3

REPORT INFORMATION
  Report Type: Spontaneous
  Country: DE (occurrence: DE)
  Receive Date: 20130923
  Receipt Date: 20130923
  Transmission Date: 20140515
  Serious: Yes (Hospitalization)
  Sender: FDA-Public Use
  Company Number: DE-ABBVIE-13P-062-1138048-00

PATIENT
  Age: 24 Year
  Sex: Male

DRUGS (2)
  1. HUMIRA [Suspect]
     Indication: CROHN^S DISEASE
     Route: 058
     Dates: start: 2009, end: 201201
  2. HUMIRA [Suspect]
     Route: 058
     Dates: start: 201207

REACTIONS (5)
  - Pneumomediastinum [Recovered/Resolved]
  - Crohn^s disease [Not Recovered/Not Resolved]
  - Unevaluable event [Unknown]
  - Oropharyngeal pain [Recovered/Resolved]
  - Dyspnoea at rest [Recovered/Resolved]
